FAERS Safety Report 5646333-2 (Version None)
Quarter: 2008Q1

REPORT INFORMATION
  Report Type: 
  Country: None (occurrence: None)
  Receive Date: 20080303
  Receipt Date: 20070930
  Transmission Date: 20080703
  Serious: Yes (Other)
  Sender: FDA-Public Use
  Company Number: PA-BAYER-200811807LA

PATIENT
  Age: 44 Year
  Sex: Male
  Weight: 103 kg

DRUGS (2)
  1. AVELOX [Suspect]
     Indication: ACUTE SINUSITIS
     Dosage: TOTAL DAILY DOSE: 400 MG  UNIT DOSE: 400 MG
     Route: 048
     Dates: start: 20070601, end: 20070601
  2. AVELOX [Suspect]
     Dosage: TOTAL DAILY DOSE: 400 MG  UNIT DOSE: 400 MG
     Route: 048
     Dates: start: 20070901, end: 20070901

REACTIONS (6)
  - DYSPNOEA [None]
  - ERYTHEMA [None]
  - NASAL DISCOMFORT [None]
  - OBSTRUCTIVE AIRWAYS DISORDER [None]
  - PHARYNGOLARYNGEAL DISCOMFORT [None]
  - SWELLING FACE [None]
